FAERS Safety Report 5817954-9 (Version None)
Quarter: 2008Q3

REPORT INFORMATION
  Report Type: 
  Country: None (occurrence: None)
  Receive Date: 20080722
  Receipt Date: 20070806
  Transmission Date: 20090109
  Serious: No
  Sender: FDA-Public Use
  Company Number: US-BAYER-US-2007-029132

PATIENT
  Age: 82 Year
  Weight: 73 kg

DRUGS (1)
  1. MAGNEVIST [Suspect]
     Indication: ANGIOGRAM
     Dosage: UNIT DOSE: 40 ML
     Route: 042
     Dates: start: 20070730, end: 20070730

REACTIONS (2)
  - SNEEZING [None]
  - WHEEZING [None]
